FAERS Safety Report 23355167 (Version 1)
Quarter: 2024Q1

REPORT INFORMATION
  Report Type: Spontaneous
  Country: CH (occurrence: None)
  Receive Date: 20240102
  Receipt Date: 20240102
  Transmission Date: 20240410
  Serious: Yes (Hospitalization, Other)
  Sender: FDA-Public Use
  Company Number: 2023A293844

PATIENT
  Age: 58 Year
  Sex: Female

DRUGS (10)
  1. DAPAGLIFLOZIN [Suspect]
     Active Substance: DAPAGLIFLOZIN
     Dosage: 10 MG
     Route: 048
     Dates: end: 20231108
  2. JARDIANCE [Suspect]
     Active Substance: EMPAGLIFLOZIN
     Indication: Type 2 diabetes mellitus
     Dosage: 10 MG
     Route: 048
     Dates: start: 20230704, end: 20231108
  3. FUNGOTOX [Concomitant]
     Dosage: (10MG/G)
  4. RUDOLAC [Concomitant]
     Dosage: AS NECESSARY
  5. JANUVIA [Concomitant]
     Active Substance: SITAGLIPTIN PHOSPHATE
  6. BISOPROLOL FUMARATE [Concomitant]
     Active Substance: BISOPROLOL FUMARATE
  7. CHOLECALCIFEROL [Concomitant]
     Active Substance: CHOLECALCIFEROL
     Dosage: 8000.0IU UNKNOWN
  8. TRESIBA [Concomitant]
     Active Substance: INSULIN DEGLUDEC
  9. CANDESARTAN [Concomitant]
     Active Substance: CANDESARTAN
  10. BRINTELLIX [Concomitant]
     Active Substance: VORTIOXETINE HYDROBROMIDE
     Dosage: 20 MG/ML
     Dates: start: 20231026

REACTIONS (1)
  - Metabolic acidosis [Recovered/Resolved]

NARRATIVE: CASE EVENT DATE: 20231110
